FAERS Safety Report 25164406 (Version 2)
Quarter: 2025Q2

REPORT INFORMATION
  Report Type: Spontaneous
  Country: DK (occurrence: DK)
  Receive Date: 20250405
  Receipt Date: 20250420
  Transmission Date: 20250716
  Serious: Yes (Life-Threatening, Hospitalization, Other)
  Sender: SANOFI AVENTIS
  Company Number: DK-MLMSERVICE-20250326-PI457781-00185-1

PATIENT
  Age: 19 Year
  Sex: Male

DRUGS (4)
  1. RIFAMPIN [Interacting]
     Active Substance: RIFAMPIN
     Indication: Suicide attempt
     Route: 048
  2. ITRACONAZOLE [Interacting]
     Active Substance: ITRACONAZOLE
     Indication: Suicide attempt
     Route: 048
  3. FUSIDIC ACID [Interacting]
     Active Substance: FUSIDIC ACID
     Indication: Suicide attempt
     Route: 048
  4. IBUPROFEN [Concomitant]
     Active Substance: IBUPROFEN
     Indication: Suicide attempt
     Route: 048

REACTIONS (13)
  - Cardiotoxicity [Recovered/Resolved]
  - Lactic acidosis [Recovered/Resolved]
  - Cardiogenic shock [Recovered/Resolved]
  - Pulmonary oedema [Recovered/Resolved]
  - Drug interaction [Recovered/Resolved]
  - Toxicity to various agents [Recovered/Resolved]
  - Skin discolouration [Recovered/Resolved]
  - Headache [Recovered/Resolved]
  - Dizziness [Recovered/Resolved]
  - Abdominal pain [Recovered/Resolved]
  - Sinus tachycardia [Recovered/Resolved]
  - Chest pain [Recovered/Resolved]
  - Circulatory collapse [Recovered/Resolved]
